FAERS Safety Report 7960373-X (Version None)
Quarter: 2011Q4

REPORT INFORMATION
  Report Type: 
  Country: None (occurrence: None)
  Receive Date: 20111206
  Receipt Date: 20110923
  Transmission Date: 20120403
  Serious: Yes (Death, Hospitalization)
  Sender: FDA-Public Use
  Company Number: PL-ROCHE-730362

PATIENT
  Sex: Female
  Weight: 59 kg

DRUGS (8)
  1. CYCLOPHOSPHAMIDE [Suspect]
     Indication: CHRONIC LYMPHOCYTIC LEUKAEMIA
     Dosage: FREQUENCY: 1,  LAST DOSE PRIOR TO SAE: 01 APRIL 2010
     Route: 042
  2. FILGRASTIM [Concomitant]
     Dates: start: 20100210, end: 20100216
  3. CLADRIBINE [Suspect]
     Indication: CHRONIC LYMPHOCYTIC LEUKAEMIA
     Dosage: FREQUENCY: 1,  LAST DOSE PRIOR TO SAE: 01 APRIL 2010
     Route: 042
  4. SULFAMETHOXAZOLUM [Concomitant]
     Dates: start: 20100126, end: 20100504
  5. MABTHERA [Suspect]
     Indication: CHRONIC LYMPHOCYTIC LEUKAEMIA
     Dosage: FREQUENCY: 1.  FORM: INTRAVENOUS.  LAST DOSE PRIOR TO SAE: 29 MARCH 2010.
     Route: 042
  6. ALLOPURINOL [Concomitant]
     Dates: start: 20100126, end: 20100204
  7. FILGRASTIM [Concomitant]
     Dates: start: 20100308, end: 20100314
  8. ACYCLOVIR SODIUM [Concomitant]
     Dates: start: 20100126, end: 20100504

REACTIONS (1)
  - RICHTER'S SYNDROME [None]
